FAERS Safety Report 21081456 (Version 1)
Quarter: 2022Q3

REPORT INFORMATION
  Report Type: Spontaneous
  Country: CN (occurrence: CN)
  Receive Date: 20220714
  Receipt Date: 20220714
  Transmission Date: 20221027
  Serious: Yes (Other)
  Sender: FDA-Public Use
  Company Number: None

PATIENT
  Age: 60 Year
  Sex: Female
  Weight: 53 kg

DRUGS (4)
  1. CYCLOPHOSPHAMIDE [Suspect]
     Active Substance: CYCLOPHOSPHAMIDE
     Indication: Breast cancer female
     Dosage: 780 MG, QD, 1ST CYCLE, CYCLOPHOSPHAMIDE FOR INJECTION (ENDOXAN CTX) (780MG) + NS (40ML)
     Route: 042
     Dates: start: 20220507, end: 20220507
  2. SODIUM CHLORIDE [Suspect]
     Active Substance: SODIUM CHLORIDE
     Indication: Medication dilution
     Dosage: 40 ML, QD, 1ST CYCLE, CYCLOPHOSPHAMIDE FOR INJECTION (ENDOXAN CTX) (780MG) + NS (40ML)
     Route: 042
     Dates: start: 20220507
  3. SODIUM CHLORIDE [Suspect]
     Active Substance: SODIUM CHLORIDE
     Dosage: 100 ML, QD, 1ST CYCLE, EPIRUBICIN HYDROCHLORIDE FOR INJECTION (AIDASHENG) (110MG) + NS (100ML)
     Route: 041
     Dates: start: 20220507
  4. EPIRUBICIN HYDROCHLORIDE [Suspect]
     Active Substance: EPIRUBICIN HYDROCHLORIDE
     Indication: Breast cancer female
     Dosage: 110 MG, QD, 1ST CYCLE, EPIRUBICIN HYDROCHLORIDE FOR INJECTION (AIDASHENG) (110MG) + NS (100ML)
     Route: 041
     Dates: start: 20220507, end: 20220507

REACTIONS (2)
  - White blood cell count decreased [Recovered/Resolved]
  - Agranulocytosis [Recovered/Resolved]

NARRATIVE: CASE EVENT DATE: 20220518
